FAERS Safety Report 7564766-4 (Version None)
Quarter: 2011Q2

REPORT INFORMATION
  Report Type: 
  Country: None (occurrence: None)
  Receive Date: 20110622
  Receipt Date: 20101217
  Transmission Date: 20111010
  Serious: Yes (Other)
  Sender: FDA-Public Use
  Company Number: US-MYLANLABS-2010S1020294

PATIENT
  Age: 51 Year
  Sex: Female
  Weight: 53.98 kg

DRUGS (8)
  1. SENOKOT [Concomitant]
     Dosage: TWO TABLETS AT BEDTIME
     Route: 048
  2. CLOZAPINE [Suspect]
     Indication: SCHIZOPHRENIA, PARANOID TYPE
     Dates: end: 20101001
  3. MILK OF MAGNESIA TAB [Concomitant]
     Indication: CONSTIPATION
     Dosage: 30 ML EVERY MORNING AS NEED
     Route: 048
  4. MYLANTA [Concomitant]
     Indication: ABDOMINAL DISCOMFORT
     Dosage: Q 6 HOURS AS NEEDED
     Route: 048
  5. COGENTIN [Concomitant]
     Dosage: ONE EVY MORNING AND ABETIME FOR EPS
     Route: 048
  6. METAMUCIL-2 [Concomitant]
     Dosage: 1 PKT NIGHTLY AT BEDTIME MIXED IWT 8 OUNCES OF WATER
     Route: 048
  7. COLACE [Concomitant]
     Route: 048
  8. RISPERDAL [Concomitant]
     Indication: PSYCHOTIC DISORDER
     Dosage: NIGHTLY AT BEDTIME
     Route: 048

REACTIONS (2)
  - LEUKOPENIA [None]
  - GRANULOCYTOPENIA [None]
